FAERS Safety Report 10284589 (Version 1)
Quarter: 2014Q3

REPORT INFORMATION
  Report Type: Spontaneous
  Country: US (occurrence: US)
  Receive Date: 20140708
  Receipt Date: 20140708
  Transmission Date: 20150326
  Serious: No
  Sender: FDA-Public Use
  Company Number: US-B.I. PHARMACEUTICALS,INC./RIDGEFIELD-2014-BI-30028BP

PATIENT
  Age: 33 Year
  Sex: Male
  Weight: 65 kg

DRUGS (4)
  1. ZANTREX-3 [Concomitant]
     Indication: BODY FAT DISORDER
     Dosage: 1928 MG
     Route: 048
     Dates: start: 201403
  2. ZANTAC [Suspect]
     Active Substance: RANITIDINE HYDROCHLORIDE
     Indication: DYSPEPSIA
  3. ZANTAC [Suspect]
     Active Substance: RANITIDINE HYDROCHLORIDE
     Indication: DYSPEPSIA
     Dosage: 600 MG
     Route: 048
     Dates: start: 201301
  4. IBUPROFEN. [Concomitant]
     Active Substance: IBUPROFEN
     Indication: MYALGIA
     Route: 048
     Dates: start: 201301

REACTIONS (3)
  - Overdose [Unknown]
  - Intentional product misuse [Unknown]
  - Drug screen false positive [Not Recovered/Not Resolved]

NARRATIVE: CASE EVENT DATE: 201301
